FAERS Safety Report 7463270-1 (Version None)
Quarter: 2011Q2

REPORT INFORMATION
  Report Type: 
  Country: None (occurrence: None)
  Receive Date: 20110506
  Receipt Date: 20110427
  Transmission Date: 20111010
  Serious: Yes (Hospitalization)
  Sender: FDA-Public Use
  Company Number: GB-EISAI INC-E7389-01230-CLI-GB

PATIENT
  Sex: Female
  Weight: 47 kg

DRUGS (7)
  1. EPIRUBICIN HYDROCHLORIDE [Suspect]
     Indication: LUNG ADENOCARCINOMA METASTATIC
     Route: 041
  2. INFUMORPH [Concomitant]
     Indication: PAIN
     Route: 048
     Dates: start: 20110111
  3. CAPECITABINE [Suspect]
     Indication: LUNG ADENOCARCINOMA METASTATIC
     Route: 048
     Dates: end: 20110426
  4. METOCLOPRAMIDE [Concomitant]
     Indication: NAUSEA
     Route: 048
     Dates: start: 20110204
  5. MORPHINE SULFATE [Concomitant]
     Indication: PAIN
     Route: 048
     Dates: start: 20110113
  6. PREGABALIN [Concomitant]
     Indication: PAIN
     Route: 048
     Dates: start: 20110207
  7. AMITRIPTYLINE [Concomitant]
     Indication: PAIN
     Route: 048
     Dates: start: 20100620

REACTIONS (4)
  - ERYTHEMA [None]
  - VOMITING [None]
  - PYREXIA [None]
  - LETHARGY [None]
